FAERS Safety Report 4846060-5 (Version None)
Quarter: 2005Q4

REPORT INFORMATION
  Report Type: 
  Country: None (occurrence: None)
  Receive Date: 20051130
  Receipt Date: 20051123
  Transmission Date: 20060501
  Serious: Yes (Life-Threatening)
  Sender: FDA-Public Use
  Company Number: 2005159728

PATIENT
  Age: 8 Year
  Sex: Female

DRUGS (3)
  1. IRINOTECAN HCL [Suspect]
     Indication: NEOPLASM
     Dosage: 22 MG (1 IN 1 D), INTRAVENOUS
     Route: 042
     Dates: start: 20051117, end: 20051117
  2. CETUXIMAB (CETUXIMAB) [Suspect]
     Indication: NEOPLASM
     Dosage: 170 MG (1 IN 1 D), INTRAVENOUS
     Route: 042
     Dates: start: 20051117, end: 20051117
  3. DEXAMETHASONE [Concomitant]

REACTIONS (6)
  - ACUTE RESPIRATORY DISTRESS SYNDROME [None]
  - HAEMOGLOBIN DECREASED [None]
  - HYPOTENSION [None]
  - LUNG INFILTRATION [None]
  - PNEUMONITIS [None]
  - WHITE BLOOD CELL COUNT DECREASED [None]
